FAERS Safety Report 4613250-6 (Version None)
Quarter: 2005Q1

REPORT INFORMATION
  Report Type: 
  Country: None (occurrence: None)
  Receive Date: 20050315
  Receipt Date: 20050228
  Transmission Date: 20050727
  Serious: Yes (Other)
  Sender: FDA-Public Use
  Company Number: 2005VX000237

PATIENT
  Age: 61 Year
  Sex: Female

DRUGS (5)
  1. TASMAR [Suspect]
     Indication: PARKINSON'S DISEASE
     Dosage: 300 MG; DAILY; ORAL
     Route: 048
  2. MADOPAR CR (LEVODOPA/BENSERAZIDE HYDROCHLORIDE) (125 MG) [Suspect]
     Indication: PARKINSON'S DISEASE
     Dosage: 125 MG; DAILY; ORAL
     Route: 048
  3. MADOPAR (LEVODOPA/BENSERAZIDE HYDROCHLORIDE) (250 MG) [Suspect]
     Indication: PARKINSON'S DISEASE
     Dosage: 750 MG; DAILY; ORAL
     Route: 048
  4. MIRAPEXIN (PRAMIPEXOLE DIHYDROCHLORIDE) (0.75 MG) [Suspect]
     Indication: PARKINSON'S DISEASE
     Dosage: 2.25 MG;DAILY
  5. PLURIMEN (SELEGILINE HYDROCHLORIDE) (5 MG) [Suspect]
     Indication: PARKINSON'S DISEASE
     Dosage: 10 MG; DAILY; ORAL
     Route: 048

REACTIONS (1)
  - HYPOAESTHESIA [None]
